FAERS Safety Report 23123809 (Version 2)
Quarter: 2024Q1

REPORT INFORMATION
  Report Type: Report from Study
  Country: US (occurrence: US)
  Receive Date: 20231030
  Receipt Date: 20240116
  Transmission Date: 20240409
  Serious: Yes (Other)
  Sender: FDA-Public Use
  Company Number: US-ABBVIE-5465453

PATIENT
  Sex: Female
  Weight: 54 kg

DRUGS (1)
  1. SKYRIZI [Suspect]
     Active Substance: RISANKIZUMAB-RZAA
     Indication: Psoriasis
     Route: 058
     Dates: start: 20220511

REACTIONS (3)
  - Spinal operation [Recovering/Resolving]
  - Atrial fibrillation [Unknown]
  - Post-acute COVID-19 syndrome [Unknown]

NARRATIVE: CASE EVENT DATE: 20220101
